FAERS Safety Report 6012719-X (Version None)
Quarter: 2008Q4

REPORT INFORMATION
  Report Type: 
  Country: None (occurrence: None)
  Receive Date: 20081217
  Receipt Date: 20081210
  Transmission Date: 20090506
  Serious: Yes (Other)
  Sender: FDA-Public Use
  Company Number: B0549823A

PATIENT
  Sex: 0

DRUGS (5)
  1. AMOXICILLIN TRIHYDRATE [Suspect]
     Dosage: TRANSPLACENTARY
     Route: 064
  2. ACETAMINOPHEN [Suspect]
     Dosage: TRANSPLACENTARY
     Route: 064
  3. CITALOPRAM HYDROBROMIDE [Suspect]
     Dosage: TRANSPLACENTARY
     Route: 064
  4. PHENOXYMETHYL PENICILLIN [Suspect]
     Dosage: TRANSPLACENTARY
     Route: 064
  5. MULTIVITAMIN [Suspect]
     Dosage: TRANSPLACENTARY
     Route: 064

REACTIONS (2)
  - MATERNAL DRUGS AFFECTING FOETUS [None]
  - PERSISTENT FOETAL CIRCULATION [None]
